FAERS Safety Report 20221674 (Version 1)
Quarter: 2021Q4

REPORT INFORMATION
  Report Type: Spontaneous
  Country: US (occurrence: None)
  Receive Date: 20211222
  Receipt Date: 20211222
  Transmission Date: 20220303
  Serious: Yes (Hospitalization)
  Sender: FDA-Public Use
  Company Number: None

PATIENT
  Age: 75 Year
  Sex: Female

DRUGS (1)
  1. XGEVA [Suspect]
     Active Substance: DENOSUMAB
     Indication: Hypercalcaemia
     Dosage: FREQUENCY : MONTHLY;?
     Route: 058
     Dates: start: 20180726

REACTIONS (2)
  - Pulmonary oedema [None]
  - Pericardial effusion [None]

NARRATIVE: CASE EVENT DATE: 20211101
